FAERS Safety Report 6633158-4 (Version None)
Quarter: 2010Q1

REPORT INFORMATION
  Report Type: 
  Country: None (occurrence: None)
  Receive Date: 20100312
  Receipt Date: 20100302
  Transmission Date: 20100710
  Serious: Yes (Hospitalization)
  Sender: FDA-Public Use
  Company Number: FR-PFIZER INC-2009223432

PATIENT
  Age: 63 Year
  Sex: Male

DRUGS (11)
  1. SUTENT [Suspect]
     Indication: RENAL CELL CARCINOMA
     Dosage: 50 MG, UNK
     Route: 048
     Dates: start: 20090401, end: 20090529
  2. LYRICA [Concomitant]
     Indication: PAIN
     Dosage: UNK
     Route: 048
  3. ALPRAZOLAM [Concomitant]
     Indication: PROPHYLAXIS
     Dosage: UNK
     Route: 048
  4. DOLIPRANE [Concomitant]
     Indication: CHEST PAIN
     Dosage: UNK
     Route: 048
  5. XATRAL [Concomitant]
     Indication: PROSTATIC ADENOMA
     Dosage: UNK
     Route: 048
  6. LAROXYL [Concomitant]
     Indication: PROPHYLAXIS
     Dosage: UNK
     Route: 048
  7. IMOVANE [Concomitant]
     Indication: PROPHYLAXIS
     Dosage: UNK
     Route: 048
  8. SOLUPRED [Concomitant]
     Indication: ASTHENIA
     Dosage: UNK
     Route: 048
  9. NEXIUM [Concomitant]
     Indication: GASTROOESOPHAGEAL REFLUX PROPHYLAXIS
     Dosage: UNK
     Route: 048
  10. FORLAX [Concomitant]
     Indication: CONSTIPATION PROPHYLAXIS
     Dosage: UNK
     Route: 048
  11. OXYCONTIN [Concomitant]
     Indication: CHEST PAIN
     Dosage: UNK
     Route: 048

REACTIONS (1)
  - CHEST PAIN [None]
